FAERS Safety Report 6114543-6 (Version None)
Quarter: 2009Q1

REPORT INFORMATION
  Report Type: 
  Country: None (occurrence: None)
  Receive Date: 20090313
  Receipt Date: 20090210
  Transmission Date: 20090719
  Serious: No
  Sender: FDA-Public Use
  Company Number: US-BAYER-200839022NA

PATIENT
  Age: 37 Year
  Sex: Female
  Weight: 62 kg

DRUGS (2)
  1. MIRENA [Suspect]
     Indication: CONTRACEPTION
     Route: 015
     Dates: start: 20081027
  2. ALLEGRA [Concomitant]

REACTIONS (6)
  - ABDOMINAL PAIN LOWER [None]
  - FORMICATION [None]
  - HOT FLUSH [None]
  - MUSCLE SPASMS [None]
  - NAUSEA [None]
  - PROCEDURAL PAIN [None]
